FAERS Safety Report 8019227-5 (Version None)
Quarter: 2011Q4

REPORT INFORMATION
  Report Type: 
  Country: None (occurrence: None)
  Receive Date: 20111229
  Receipt Date: 20111214
  Transmission Date: 20120403
  Serious: Yes (Other)
  Sender: FDA-Public Use
  Company Number: CIP11001508

PATIENT
  Age: 58 Year
  Sex: Female
  Weight: 56.246 kg

DRUGS (4)
  1. BONIVA [Suspect]
     Indication: OSTEOPOROSIS
     Dosage: DOSAGE / REGIMEN UNKNOWN
     Route: 048
  2. ACTONEL [Suspect]
     Indication: OSTEOPOROSIS
     Dosage: DOSAGE / REGIMEN UNKNOWN, ORAL
     Route: 048
  3. FOSAMAX [Suspect]
     Indication: OSTEOPOROSIS
     Dosage: DOSAGE / REGIMEN UNKNOWN, ORAL
     Route: 048
  4. FOSAMAX PLUS D [Suspect]
     Indication: OSTEOPOROSIS
     Dosage: DOSAGE / REGIMEN UNKNOWN, ORAL
     Route: 048

REACTIONS (7)
  - STRESS FRACTURE [None]
  - FEMUR FRACTURE [None]
  - LOW TURNOVER OSTEOPATHY [None]
  - SKELETAL INJURY [None]
  - TOXICITY TO VARIOUS AGENTS [None]
  - PAIN [None]
  - FRACTURE DISPLACEMENT [None]
